FAERS Safety Report 11330521 (Version 2)
Quarter: 2015Q4

REPORT INFORMATION
  Report Type: Report from Study
  Country: CO (occurrence: CO)
  Receive Date: 20150803
  Receipt Date: 20151130
  Transmission Date: 20160304
  Serious: Yes (Hospitalization, Other)
  Sender: FDA-Public Use
  Company Number: CO-ABBVIE-15K-036-1437223-00

PATIENT
  Age: 30 Year
  Sex: Female
  Weight: 50 kg

DRUGS (1)
  1. HUMIRA [Suspect]
     Active Substance: ADALIMUMAB
     Indication: RHEUMATOID ARTHRITIS
     Route: 058
     Dates: start: 20140813, end: 20150630

REACTIONS (7)
  - Prurigo [Recovered/Resolved]
  - Blister [Recovered/Resolved]
  - Nodule [Recovered/Resolved]
  - Pain in extremity [Recovered/Resolved]
  - Malaise [Recovered/Resolved]
  - Decreased activity [Recovered/Resolved]
  - Lymphadenitis [Recovered/Resolved]

NARRATIVE: CASE EVENT DATE: 20150530
